FAERS Safety Report 13697366 (Version 1)
Quarter: 2017Q2

REPORT INFORMATION
  Report Type: Spontaneous
  Country: US (occurrence: US)
  Receive Date: 20170628
  Receipt Date: 20170628
  Transmission Date: 20170830
  Serious: Yes (Other)
  Sender: FDA-Public Use
  Company Number: None

PATIENT
  Age: 60 Year
  Sex: Female
  Weight: 90.72 kg

DRUGS (2)
  1. METFORMIN [Concomitant]
     Active Substance: METFORMIN HYDROCHLORIDE
  2. JANUVIA [Suspect]
     Active Substance: SITAGLIPTIN PHOSPHATE
     Indication: DIABETES MELLITUS
     Dosage: ?          QUANTITY:\ \BL;?
     Route: 048
     Dates: start: 20170505, end: 20170606

REACTIONS (4)
  - Lip blister [None]
  - Swelling face [None]
  - Eyelid oedema [None]
  - Angioedema [None]

NARRATIVE: CASE EVENT DATE: 20170606
